FAERS Safety Report 14974259 (Version 1)
Quarter: 2018Q2

REPORT INFORMATION
  Report Type: Spontaneous
  Country: US (occurrence: US)
  Receive Date: 20180605
  Receipt Date: 20180605
  Transmission Date: 20180711
  Serious: Yes (Disabling, Other)
  Sender: FDA-Public Use
  Company Number: US-TARO-2018TAR00417

PATIENT
  Sex: Female

DRUGS (2)
  1. UNSPECIFIED MEDICATIONS [Suspect]
     Active Substance: UNSPECIFIED INGREDIENT
  2. AMIODARONE HCL TABLET 200 MG [Suspect]
     Active Substance: AMIODARONE HYDROCHLORIDE
     Indication: ATRIAL FIBRILLATION
     Dosage: UNK
     Dates: start: 201511

REACTIONS (12)
  - Nervous system disorder [Unknown]
  - Bone marrow granuloma [Unknown]
  - Hypothyroidism [Unknown]
  - Oedema [Unknown]
  - Asthenia [Unknown]
  - Visual impairment [Unknown]
  - Sarcoidosis [Unknown]
  - Pain [Unknown]
  - Muscle disorder [Unknown]
  - Unevaluable event [Unknown]
  - Off label use [Unknown]
  - Pulmonary toxicity [Unknown]

NARRATIVE: CASE EVENT DATE: 201601
